FAERS Safety Report 13360330 (Version 12)
Quarter: 2019Q1

REPORT INFORMATION
  Report Type: Spontaneous
  Country: US (occurrence: US)
  Receive Date: 20170322
  Receipt Date: 20190328
  Transmission Date: 20190417
  Serious: Yes (Other)
  Sender: FDA-Public Use
  Company Number: US-INCYTE CORPORATION-2017IN001869

PATIENT

DRUGS (15)
  1. JAKAFI [Suspect]
     Active Substance: RUXOLITINIB
     Dosage: 20 MG, BID
     Route: 048
  2. ALEVE [Concomitant]
     Active Substance: NAPROXEN SODIUM
     Indication: BACK PAIN
     Dosage: UNK, PRN
     Route: 065
  3. OMEPRAZOLE. [Concomitant]
     Active Substance: OMEPRAZOLE
     Indication: PRODUCT USED FOR UNKNOWN INDICATION
     Route: 065
  4. CEFDINIR. [Concomitant]
     Active Substance: CEFDINIR
     Indication: PRODUCT USED FOR UNKNOWN INDICATION
     Route: 065
  5. JAKAFI [Suspect]
     Active Substance: RUXOLITINIB
     Dosage: 15 MG, UNK
     Route: 065
     Dates: start: 20180213
  6. JAKAFI [Suspect]
     Active Substance: RUXOLITINIB
     Dosage: 20 MG, BID
     Route: 048
     Dates: start: 20170221
  7. REVLIMID [Concomitant]
     Active Substance: LENALIDOMIDE
     Indication: PRODUCT USED FOR UNKNOWN INDICATION
     Route: 065
  8. JAKAFI [Suspect]
     Active Substance: RUXOLITINIB
     Indication: MYELOFIBROSIS
     Dosage: 20 MG, BID
     Route: 048
     Dates: start: 20170221
  9. JAKAFI [Suspect]
     Active Substance: RUXOLITINIB
     Dosage: 15 MG, BID
     Route: 048
     Dates: start: 20170221
  10. JAKAFI [Suspect]
     Active Substance: RUXOLITINIB
     Dosage: 15 MG, BID
     Route: 048
     Dates: start: 20170223
  11. ONDANSETRON [Concomitant]
     Active Substance: ONDANSETRON
     Indication: PRODUCT USED FOR UNKNOWN INDICATION
     Route: 065
  12. PHENERGAN [Concomitant]
     Active Substance: PROMETHAZINE HYDROCHLORIDE
     Indication: PRODUCT USED FOR UNKNOWN INDICATION
     Route: 065
  13. JAKAFI [Suspect]
     Active Substance: RUXOLITINIB
     Dosage: 20 MG, BID
     Route: 048
  14. JAKAFI [Suspect]
     Active Substance: RUXOLITINIB
     Dosage: 15 MG, BID
     Route: 048
     Dates: start: 2018
  15. ALEVE [Concomitant]
     Active Substance: NAPROXEN SODIUM
     Indication: PAIN IN EXTREMITY

REACTIONS (23)
  - Myalgia [Not Recovered/Not Resolved]
  - Oropharyngeal pain [Unknown]
  - Headache [Not Recovered/Not Resolved]
  - Nausea [Not Recovered/Not Resolved]
  - Arthralgia [Unknown]
  - Panic attack [Unknown]
  - Haemoglobin decreased [Not Recovered/Not Resolved]
  - Pain in extremity [Unknown]
  - Product dose omission [Not Recovered/Not Resolved]
  - Dyspnoea [Unknown]
  - Anaemia [Recovering/Resolving]
  - Fatigue [Not Recovered/Not Resolved]
  - Dizziness [Not Recovered/Not Resolved]
  - Burning sensation [Unknown]
  - Neuralgia [Unknown]
  - Dyspepsia [Unknown]
  - Back pain [Unknown]
  - Memory impairment [Not Recovered/Not Resolved]
  - Chills [Unknown]
  - Malaise [Unknown]
  - Red blood cell count decreased [Not Recovered/Not Resolved]
  - Productive cough [Unknown]
  - Vertigo [Unknown]

NARRATIVE: CASE EVENT DATE: 20170301
